FAERS Safety Report 16261207 (Version 1)
Quarter: 2019Q2

REPORT INFORMATION
  Report Type: Spontaneous
  Country: GB (occurrence: GB)
  Receive Date: 20190501
  Receipt Date: 20190501
  Transmission Date: 20190711
  Serious: Yes (Hospitalization)
  Sender: FDA-Public Use
  Company Number: GB-ANIPHARMA-2019-UK-000066

PATIENT
  Age: 91 Year
  Sex: Female

DRUGS (4)
  1. WARFARIN [Concomitant]
     Active Substance: WARFARIN
     Dosage: UNK
     Route: 065
  2. BISOPROLOL [Concomitant]
     Active Substance: BISOPROLOL
     Dosage: UNK
     Route: 065
  3. PARACETAMOL [Concomitant]
     Active Substance: ACETAMINOPHEN
     Dosage: UNK
     Route: 065
  4. CANDESARTAN. [Suspect]
     Active Substance: CANDESARTAN
     Indication: ESSENTIAL HYPERTENSION
     Dosage: 4 MG QD
     Route: 048
     Dates: start: 20180601, end: 20190329

REACTIONS (10)
  - C-reactive protein increased [Unknown]
  - Confusional state [Unknown]
  - Blood pressure decreased [Unknown]
  - Hypophagia [Unknown]
  - Body temperature decreased [Unknown]
  - Feeling cold [Unknown]
  - Acute kidney injury [Recovering/Resolving]
  - General physical health deterioration [Unknown]
  - Asthenia [Unknown]
  - Fluid intake reduced [Unknown]

NARRATIVE: CASE EVENT DATE: 20190328
